FAERS Safety Report 14879898 (Version 2)
Quarter: 2018Q3

REPORT INFORMATION
  Report Type: Report from Study
  Country: US (occurrence: US)
  Receive Date: 20180511
  Receipt Date: 20180705
  Transmission Date: 20181010
  Serious: Yes (Life-Threatening, Hospitalization, Other)
  Sender: FDA-Public Use
  Company Number: PHEH2018US017935

PATIENT
  Sex: Female

DRUGS (2)
  1. COSENTYX [Suspect]
     Active Substance: SECUKINUMAB
     Dosage: UNK, QMO
     Route: 065
  2. COSENTYX [Suspect]
     Active Substance: SECUKINUMAB
     Indication: PRODUCT USED FOR UNKNOWN INDICATION
     Dosage: 300 MG, QW
     Route: 058

REACTIONS (10)
  - Myocardial infarction [Unknown]
  - Pain [Unknown]
  - Drug hypersensitivity [Unknown]
  - Depression [Unknown]
  - Musculoskeletal stiffness [Unknown]
  - Guttate psoriasis [Unknown]
  - Injury [Unknown]
  - Stress [Unknown]
  - Psoriasis [Unknown]
  - Onychomadesis [Unknown]
